FAERS Safety Report 7892442-7 (Version None)
Quarter: 2011Q4

REPORT INFORMATION
  Report Type: 
  Country: None (occurrence: None)
  Receive Date: 20111104
  Receipt Date: 20111101
  Transmission Date: 20120403
  Serious: Yes (Other)
  Sender: FDA-Public Use
  Company Number: US-JNJFOC-20111005502

PATIENT
  Sex: Male
  Weight: 102.06 kg

DRUGS (4)
  1. STELARA [Suspect]
     Indication: PSORIASIS
     Route: 058
     Dates: start: 20110725
  2. IBUPROFEN [Suspect]
     Indication: PRODUCT USED FOR UNKNOWN INDICATION
     Route: 048
     Dates: start: 20110801
  3. STELARA [Suspect]
     Route: 058
     Dates: start: 20110819
  4. NASAL SPRAY UNSPECIFIED [Concomitant]
     Route: 055

REACTIONS (2)
  - LUPUS-LIKE SYNDROME [None]
  - DERMATITIS ALLERGIC [None]
